FAERS Safety Report 16853833 (Version 2)
Quarter: 2020Q3

REPORT INFORMATION
  Report Type: Spontaneous
  Country: DE (occurrence: DE)
  Receive Date: 20190926
  Receipt Date: 20200916
  Transmission Date: 20201102
  Serious: Yes (Other)
  Sender: FDA-Public Use
  Company Number: DE-AUROBINDO-AUR-APL-2019-062154

PATIENT
  Age: 30 Year
  Sex: Female
  Weight: 88 kg

DRUGS (3)
  1. FOLIO FORTE [Concomitant]
     Active Substance: FOLIC ACID\VITAMINS
     Indication: PROPHYLAXIS OF NEURAL TUBE DEFECT
     Dosage: 0.8 MG/D (BIS 0.4 MG/D)
     Route: 048
     Dates: start: 20180526
  2. INSULIN [Concomitant]
     Active Substance: INSULIN NOS
     Indication: GESTATIONAL DIABETES
     Dosage: 8 [I.E./D ]
     Route: 058
  3. QUETIAPINE. [Suspect]
     Active Substance: QUETIAPINE
     Indication: BIPOLAR I DISORDER
     Dosage: 600 MILLIGRAM, ONCE A DAY (BIS 500 MG/D)
     Route: 048
     Dates: start: 20180526

REACTIONS (1)
  - Gestational diabetes [Recovered/Resolved]
